FAERS Safety Report 9481980 (Version 3)
Quarter: 2013Q3

REPORT INFORMATION
  Report Type: Report from Study
  Country: DE (occurrence: DE)
  Receive Date: 20130828
  Receipt Date: 20130916
  Transmission Date: 20140515
  Serious: Yes (Hospitalization, Other)
  Sender: FDA-Public Use
  Company Number: DE-AMGEN-DEUCT2013058394

PATIENT
  Age: 46 Year
  Sex: Female
  Weight: 74 kg

DRUGS (5)
  1. ETANERCEPT [Suspect]
     Indication: RHEUMATOID ARTHRITIS
     Dosage: 50 MG, QWK
     Route: 065
     Dates: start: 20130609
  2. MTX                                /00113802/ [Concomitant]
     Indication: RHEUMATOID ARTHRITIS
     Dosage: 15 MG, UNK
     Route: 048
     Dates: start: 201208, end: 201304
  3. MTX                                /00113802/ [Concomitant]
     Dosage: 20 MG, UNK
     Route: 058
     Dates: start: 201304, end: 20130609
  4. MTX                                /00113802/ [Concomitant]
     Dosage: 10 MG, UNK
     Route: 058
     Dates: start: 20130609
  5. PREDNISOLON                        /00016201/ [Concomitant]
     Dosage: 5/DAILY

REACTIONS (1)
  - Breast cancer female [Not Recovered/Not Resolved]
